FAERS Safety Report 8442901-3 (Version None)
Quarter: 2012Q2

REPORT INFORMATION
  Report Type: 
  Country: None (occurrence: None)
  Receive Date: 20120615
  Receipt Date: 20120605
  Transmission Date: 20120825
  Serious: No
  Sender: FDA-Public Use
  Company Number: US-ASTRAZENECA-2012SE37606

PATIENT
  Age: 76 Year
  Sex: Female
  Weight: 70.8 kg

DRUGS (8)
  1. SYNTHROID [Concomitant]
     Indication: THYROID HORMONE REPLACEMENT THERAPY
  2. ASPIRIN [Concomitant]
     Indication: PROPHYLAXIS
  3. MULTIVITAMIN [Concomitant]
     Indication: MACULAR DEGENERATION
  4. WELLBUTRIN [Concomitant]
     Indication: DEPRESSION
  5. ACTONEL [Concomitant]
     Indication: OSTEOPOROSIS
  6. VITAMIN TAB [Concomitant]
     Indication: MEDICAL DIET
  7. CALCIUM [Concomitant]
     Indication: MEDICAL DIET
  8. PULMICORT FLEXHALER [Suspect]
     Indication: COUGH
     Dosage: ONE PUFF DAILY
     Route: 055

REACTIONS (3)
  - BODY HEIGHT DECREASED [None]
  - DRUG DOSE OMISSION [None]
  - OFF LABEL USE [None]
